FAERS Safety Report 7824717-1 (Version None)
Quarter: 2011Q4

REPORT INFORMATION
  Report Type: 
  Country: None (occurrence: None)
  Receive Date: 20111019
  Receipt Date: 20111011
  Transmission Date: 20120403
  Serious: Yes (Other)
  Sender: FDA-Public Use
  Company Number: PHHY2011DE46112

PATIENT
  Sex: Male
  Weight: 86 kg

DRUGS (4)
  1. TAXOTERE [Concomitant]
     Dates: start: 20100401, end: 20100601
  2. TAXOTERE [Concomitant]
     Dates: start: 20101101, end: 20110301
  3. ANTIANDROGENS [Concomitant]
     Dates: start: 20060101
  4. ZOMETA [Suspect]
     Indication: METASTASES TO BONE
     Dosage: MONTHLY
     Dates: start: 20090501, end: 20100501

REACTIONS (1)
  - OSTEONECROSIS OF JAW [None]
